FAERS Safety Report 9876616 (Version 2)
Quarter: 2014Q1

REPORT INFORMATION
  Report Type: Other
  Country: US (occurrence: US)
  Receive Date: 20140206
  Receipt Date: 20140206
  Transmission Date: 20141002
  Serious: No
  Sender: FDA-Public Use
  Company Number: US-ACORDA-ACO_35570_2013

PATIENT
  Age: 60 Year
  Sex: Female
  Weight: 81.63 kg

DRUGS (6)
  1. AMPYRA [Suspect]
     Indication: GAIT DISTURBANCE
     Dosage: 10 MG, Q 12 HRS
     Route: 048
     Dates: start: 20130406
  2. AMPYRA [Suspect]
     Indication: GAIT DISTURBANCE
  3. XANAX [Concomitant]
     Indication: SLEEP DISORDER
     Dosage: 0.5 MG, 2 TABLETS AT HS
     Dates: end: 20130405
  4. XANAX [Concomitant]
     Dosage: 0.5 MG, 2.5 TABLETS AT HS
     Dates: start: 20130406
  5. PRILOSEC [Concomitant]
     Indication: PRODUCT USED FOR UNKNOWN INDICATION
     Dosage: UNK
  6. REGLAN [Concomitant]
     Indication: PRODUCT USED FOR UNKNOWN INDICATION
     Dosage: UNK

REACTIONS (3)
  - Sleep disorder [Recovered/Resolved]
  - Nausea [Recovered/Resolved]
  - Insomnia [Recovered/Resolved]
